FAERS Safety Report 6671302-3 (Version None)
Quarter: 2010Q2

REPORT INFORMATION
  Report Type: 
  Country: None (occurrence: None)
  Receive Date: 20100407
  Receipt Date: 20100401
  Transmission Date: 20101027
  Serious: Yes (Hospitalization)
  Sender: FDA-Public Use
  Company Number: A0853391A

PATIENT
  Age: 37 Year
  Sex: Female

DRUGS (3)
  1. ALLI [Suspect]
     Indication: WEIGHT LOSS DIET
     Dates: start: 20100201
  2. HUMULIN 70/30 [Concomitant]
     Route: 058
  3. RANITIDINE [Concomitant]
     Indication: DRUG USE FOR UNKNOWN INDICATION

REACTIONS (17)
  - ABASIA [None]
  - ANXIETY [None]
  - ASTHENIA [None]
  - DEHYDRATION [None]
  - DEPRESSED LEVEL OF CONSCIOUSNESS [None]
  - DIALYSIS [None]
  - EATING DISORDER [None]
  - ELECTROLYTE IMBALANCE [None]
  - HEPATIC FAILURE [None]
  - HYPOTENSION [None]
  - ILL-DEFINED DISORDER [None]
  - NAUSEA [None]
  - PYREXIA [None]
  - REGURGITATION [None]
  - RENAL FAILURE [None]
  - SENSORY DISTURBANCE [None]
  - VOMITING [None]
